FAERS Safety Report 5595547-9 (Version None)
Quarter: 2008Q1

REPORT INFORMATION
  Report Type: 
  Country: None (occurrence: None)
  Receive Date: 20080118
  Receipt Date: 20080114
  Transmission Date: 20080703
  Serious: Yes (Other)
  Sender: FDA-Public Use
  Company Number: PHRM2007FR02559

PATIENT
  Sex: Female
  Weight: 56 kg

DRUGS (3)
  1. ZOMETA [Suspect]
     Indication: BREAST CANCER
     Dates: start: 20051205, end: 20060531
  2. ZOMETA [Suspect]
     Dosage: 4 MG, QMO
     Route: 042
     Dates: start: 20041019, end: 20050921
  3. CLASTOBAN [Suspect]
     Dosage: 1.6 G, QD
     Dates: start: 20050921, end: 20051205

REACTIONS (3)
  - IMPAIRED HEALING [None]
  - OSTEONECROSIS [None]
  - TOOTH EXTRACTION [None]
